FAERS Safety Report 8336316 (Version 2)
Quarter: 2015Q1

REPORT INFORMATION
  Report Type: Report from Study
  Country: US (occurrence: US)
  Receive Date: 20120113
  Receipt Date: 20150227
  Transmission Date: 20150721
  Serious: Yes (Death)
  Sender: FDA-Public Use
  Company Number: US-ROCHE-1029396

PATIENT
  Sex: Female
  Weight: 61.74 kg

DRUGS (10)
  1. DEXAMETHASONE. [Concomitant]
     Active Substance: DEXAMETHASONE
  2. COMPAZINE [Concomitant]
     Active Substance: PROCHLORPERAZINE MALEATE
     Route: 065
  3. TAXOL [Concomitant]
     Active Substance: PACLITAXEL
     Route: 065
  4. AVASTIN [Suspect]
     Active Substance: BEVACIZUMAB
     Indication: ANAL CANCER
     Route: 042
     Dates: start: 20090217
  5. BENADRYL [Concomitant]
     Active Substance: DIPHENHYDRAMINE HYDROCHLORIDE
  6. CARBOPLATIN. [Concomitant]
     Active Substance: CARBOPLATIN
     Indication: BONE MARROW FAILURE
     Route: 065
  7. INTERLEUKIN-2 [Concomitant]
     Active Substance: ALDESLEUKIN
     Route: 065
  8. ZOFRAN [Concomitant]
     Active Substance: ONDANSETRON HYDROCHLORIDE
     Route: 065
  9. DACARBAZINE. [Concomitant]
     Active Substance: DACARBAZINE
     Route: 065
  10. ANZEMET [Concomitant]
     Active Substance: DOLASETRON MESYLATE
     Route: 065

REACTIONS (6)
  - Death [Fatal]
  - Disease progression [Unknown]
  - Metastases to liver [Unknown]
  - Metastases to peritoneum [Unknown]
  - Fluid overload [Unknown]
  - Off label use [Unknown]
